FAERS Safety Report 7680247-1 (Version None)
Quarter: 2011Q3

REPORT INFORMATION
  Report Type: 
  Country: None (occurrence: None)
  Receive Date: 20110812
  Receipt Date: 20110809
  Transmission Date: 20111222
  Serious: Yes (Hospitalization)
  Sender: FDA-Public Use
  Company Number: US-ACTELION-A-NJ2011-52496

PATIENT

DRUGS (21)
  1. IPRATROPIUM BROMIDE [Concomitant]
  2. TORSEMIDE [Concomitant]
  3. TRACLEER [Suspect]
     Indication: PULMONARY ARTERIAL HYPERTENSION
     Dosage: 62.5 MG, BID
     Route: 048
     Dates: start: 20110701, end: 20110729
  4. PANCRELIPASE [Concomitant]
  5. ESOMEPRAZOLE MAGNESIUM [Concomitant]
  6. COLESTIPOL HYDROCHLORIDE [Concomitant]
  7. MOXIFLOXACIN [Concomitant]
  8. ATORVASTATIN [Concomitant]
  9. CLOPIDOGREL [Concomitant]
  10. FERROUS SULFATE TAB [Concomitant]
  11. TRACLEER [Suspect]
     Dosage: 125 MG, BID
     Route: 048
     Dates: start: 20110730
  12. REVATIO [Concomitant]
  13. ALBUTEROL SULFATE AUTOHALER [Concomitant]
  14. METOPROLOL TARTRATE [Concomitant]
  15. LANTUS [Concomitant]
  16. LEVOTHYROXINE SODIUM [Concomitant]
  17. COUMADIN [Concomitant]
  18. SPIRONOLACTONE [Concomitant]
  19. NOVOLOG [Concomitant]
  20. LACTOBACILLUS ACIDOPHILUS [Concomitant]
  21. CALCIUM CHANNEL BLOCKERS [Concomitant]

REACTIONS (2)
  - OEDEMA PERIPHERAL [None]
  - VISION BLURRED [None]
